FAERS Safety Report 8949588 (Version 1)
Quarter: 2012Q4

REPORT INFORMATION
  Report Type: 
  Country: US (occurrence: US)
  Receive Date: 20121206
  Receipt Date: 20121206
  Transmission Date: 20130627
  Serious: Yes (Other)
  Sender: FDA-Public Use
  Company Number: US-BAYER-2012-125948

PATIENT
  Age: 53 Year
  Sex: Female
  Weight: 38.6 kg

DRUGS (2)
  1. SORAFENIB (RAF KINASE INHIBITOR) [Suspect]
     Indication: NON-SMALL CELL LUNG CANCER STAGE IV
     Dosage: 200 mg, BID
     Route: 048
     Dates: start: 20121016
  2. PANOBINOSTAT [Suspect]
     Indication: NON-SMALL CELL LUNG CANCER STAGE IV
     Dosage: 20 mg, TIW
     Route: 048
     Dates: start: 20121016

REACTIONS (1)
  - Pulmonary embolism [None]
